FAERS Safety Report 11755063 (Version 1)
Quarter: 2015Q4

REPORT INFORMATION
  Report Type: Other
  Country: MX (occurrence: MX)
  Receive Date: 20151119
  Receipt Date: 20151119
  Transmission Date: 20160304
  Serious: Yes (Hospitalization)
  Sender: FDA-Public Use
  Company Number: MX-DEP_13023_2015

PATIENT
  Age: 7 Year
  Sex: Male
  Weight: 30 kg

DRUGS (13)
  1. MIDAZOLAM [Concomitant]
     Active Substance: MIDAZOLAM\MIDAZOLAM HYDROCHLORIDE
     Dosage: 6MG/HR
  2. MIDAZOLAM [Concomitant]
     Active Substance: MIDAZOLAM\MIDAZOLAM HYDROCHLORIDE
     Dosage: 3MG/H
  3. SEVOFLURANE. [Concomitant]
     Active Substance: SEVOFLURANE
     Dosage: DF
  4. FENTANYL. [Suspect]
     Active Substance: FENTANYL
     Dosage: 30MG/HR; POST-OP
  5. THIOPENTAL [Concomitant]
     Active Substance: THIOPENTAL
     Dosage: 2MG/KG PER HOUR
  6. OMEPRAZOLE. [Concomitant]
     Active Substance: OMEPRAZOLE
     Dosage: DF
  7. CEFTRIAXONE. [Concomitant]
     Active Substance: CEFTRIAXONE
     Dosage: DF
  8. PHENYTOIN. [Concomitant]
     Active Substance: PHENYTOIN
     Dosage: DF
  9. FENTANYL. [Suspect]
     Active Substance: FENTANYL
     Dosage: 15MG/HR; POST-OP
  10. FENTANYL. [Suspect]
     Active Substance: FENTANYL
     Indication: PRODUCT USED FOR UNKNOWN INDICATION
     Dosage: DURING SURGERY
  11. ATRACURIUM [Concomitant]
     Active Substance: ATRACURIUM
  12. PROPOFOL. [Concomitant]
     Active Substance: PROPOFOL
  13. PROPOFOL. [Concomitant]
     Active Substance: PROPOFOL
     Dosage: BOLUS

REACTIONS (1)
  - Serotonin syndrome [Recovered/Resolved]
